FAERS Safety Report 6259265-6 (Version None)
Quarter: 2009Q3

REPORT INFORMATION
  Report Type: 
  Country: None (occurrence: None)
  Receive Date: 20090702
  Receipt Date: 20090617
  Transmission Date: 20100115
  Serious: Yes (Other)
  Sender: FDA-Public Use
  Company Number: 2009S1004913

PATIENT
  Age: 60 Year
  Sex: Male

DRUGS (1)
  1. PHOSPHOSODA    FLAVOR NOT SPECIFIED [Suspect]
     Indication: COLONOSCOPY
     Dosage: 90 ML; TOTAL; PO
     Route: 048
     Dates: start: 20080801, end: 20080801

REACTIONS (1)
  - NEPHROPATHY [None]
